FAERS Safety Report 4859893-6 (Version None)
Quarter: 2005Q4

REPORT INFORMATION
  Report Type: 
  Country: None (occurrence: None)
  Receive Date: 20051216
  Receipt Date: 20051205
  Transmission Date: 20060501
  Serious: Yes (Other)
  Sender: FDA-Public Use
  Company Number: GXKR2005GB01850

PATIENT
  Age: 39 Year
  Sex: Female

DRUGS (3)
  1. DIAZEPAM [Suspect]
     Dosage: 60-70 MG
     Dates: start: 20041129, end: 20041130
  2. CIPRALEX/GFR/ (ESCITALOPRAM OXALATE) [Suspect]
     Indication: ANXIETY
     Dosage: 5-20 MG, ORAL
     Route: 048
     Dates: start: 20040621, end: 20050102
  3. ETHANOL (ETHANOL) [Suspect]
     Dates: start: 20001129, end: 20041130

REACTIONS (3)
  - IMPULSIVE BEHAVIOUR [None]
  - MULTIPLE DRUG OVERDOSE [None]
  - SUICIDE ATTEMPT [None]
